FAERS Safety Report 8174445-0 (Version None)
Quarter: 2012Q1

REPORT INFORMATION
  Report Type: 
  Country: None (occurrence: None)
  Receive Date: 20120229
  Receipt Date: 20120222
  Transmission Date: 20120608
  Serious: Yes (Hospitalization)
  Sender: FDA-Public Use
  Company Number: US-TEVA-322229USA

PATIENT
  Sex: Male

DRUGS (2)
  1. SIMVASTATIN [Suspect]
     Dosage: 40 MILLIGRAM; 1 PILL AFTER DINNER EVERY DAY
     Dates: start: 20080901
  2. ACETYLSALICYLIC ACID (BABY ASPIRIN) [Concomitant]
     Dosage: WITH BREAKFAST EACH DAY

REACTIONS (16)
  - PRURITUS [None]
  - CONSTIPATION [None]
  - HEADACHE [None]
  - NASAL CONGESTION [None]
  - ASTHENIA [None]
  - MYALGIA [None]
  - VERTIGO [None]
  - CHEST PAIN [None]
  - RHINORRHOEA [None]
  - MUSCLE SPASMS [None]
  - ARTHRALGIA [None]
  - DEPRESSION [None]
  - TREMOR [None]
  - AMNESIA [None]
  - INSOMNIA [None]
  - ANXIETY [None]
